FAERS Safety Report 23858953 (Version 1)
Quarter: 2024Q2

REPORT INFORMATION
  Report Type: Report from Study
  Country: KR (occurrence: KR)
  Receive Date: 20240515
  Receipt Date: 20240515
  Transmission Date: 20240716
  Serious: Yes (Other)
  Sender: FDA-Public Use
  Company Number: KR-002147023-NVSC2023KR107718

PATIENT
  Age: 57 Year
  Sex: Male

DRUGS (12)
  1. LUTATHERA [Suspect]
     Active Substance: LUTETIUM OXODOTREOTIDE LU-177
     Indication: Gastroenteropancreatic neuroendocrine tumour disease
     Dosage: 7.4 GBQ
     Route: 042
     Dates: start: 20230223, end: 20230223
  2. LUTATHERA [Suspect]
     Active Substance: LUTETIUM OXODOTREOTIDE LU-177
     Dosage: 7.4 GBQ
     Route: 042
     Dates: start: 20230420, end: 20230420
  3. ARGININE\LYSINE [Suspect]
     Active Substance: ARGININE\LYSINE
     Indication: Renal disorder prophylaxis
     Dosage: 1000 ML
     Route: 042
     Dates: start: 20230223, end: 20230223
  4. ARGININE\LYSINE [Suspect]
     Active Substance: ARGININE\LYSINE
     Dosage: 1000 ML
     Route: 042
     Dates: start: 20230420, end: 20230420
  5. METFORMIN HYDROCHLORIDE [Concomitant]
     Active Substance: METFORMIN HYDROCHLORIDE
     Indication: Diabetes mellitus
     Dosage: 1 DOSAGE FORM, QD
     Route: 048
     Dates: start: 20230223, end: 20230223
  6. LIVALO [Concomitant]
     Active Substance: PITAVASTATIN CALCIUM
     Indication: Diabetes mellitus
     Dosage: 1 DOSAGE FORM, QD
     Route: 048
     Dates: start: 20230223
  7. JARDIANCE [Concomitant]
     Active Substance: EMPAGLIFLOZIN
     Indication: Diabetes mellitus
     Dosage: 5 MG, QD
     Route: 048
     Dates: start: 20230223
  8. REXFORGE Q [Concomitant]
     Indication: Hypertension
     Dosage: 1 DOSAGE FORM, QD
     Route: 048
     Dates: start: 20230223
  9. BASEN [Concomitant]
     Indication: Diabetes mellitus
     Dosage: 0.3 MG, TID
     Route: 048
     Dates: start: 20230223, end: 20230223
  10. ALOXI [Concomitant]
     Active Substance: PALONOSETRON HYDROCHLORIDE
     Indication: Antiemetic supportive care
     Dosage: 0.25 MG, QD
     Route: 042
     Dates: start: 20230223, end: 20230223
  11. ALOXI [Concomitant]
     Active Substance: PALONOSETRON HYDROCHLORIDE
     Dosage: 0.25 MG, QD
     Route: 042
     Dates: start: 20230420, end: 20230420
  12. MORPHINE SULFATE [Concomitant]
     Active Substance: MORPHINE SULFATE
     Indication: Abdominal pain
     Dosage: 20 MG, QD
     Route: 042
     Dates: start: 20230503, end: 20230512

REACTIONS (4)
  - Gastric ulcer [Not Recovered/Not Resolved]
  - Nausea [Recovered/Resolved]
  - Back pain [Recovered/Resolved]
  - Hepatic enzyme increased [Not Recovered/Not Resolved]

NARRATIVE: CASE EVENT DATE: 20230223
